FAERS Safety Report 10782666 (Version 1)
Quarter: 2015Q1

REPORT INFORMATION
  Report Type: Spontaneous
  Country: GB (occurrence: GB)
  Receive Date: 20150210
  Receipt Date: 20150210
  Transmission Date: 20150721
  Serious: Yes (Disabling, Other)
  Sender: FDA-Public Use
  Company Number: GB-TEVA-538410ISR

PATIENT
  Age: 19 Year
  Sex: Male
  Weight: 67.12 kg

DRUGS (1)
  1. HYDROCORTISONE. [Suspect]
     Active Substance: HYDROCORTISONE
     Indication: DRY SKIN
     Dosage: APPLY THINLY TWICE A DAY
     Route: 061
     Dates: start: 20141114, end: 20141212

REACTIONS (5)
  - Dry skin [Not Recovered/Not Resolved]
  - Balanoposthitis [Not Recovered/Not Resolved]
  - Penile erythema [Not Recovered/Not Resolved]
  - Penile pain [Not Recovered/Not Resolved]
  - Skin atrophy [Not Recovered/Not Resolved]

NARRATIVE: CASE EVENT DATE: 20141114
